FAERS Safety Report 22592932 (Version 1)
Quarter: 2023Q2

REPORT INFORMATION
  Report Type: Report from Study
  Country: CO (occurrence: CO)
  Receive Date: 20230613
  Receipt Date: 20230613
  Transmission Date: 20230722
  Serious: Yes (Hospitalization, Other)
  Sender: FDA-Public Use
  Company Number: CO-ABBVIE-5285452

PATIENT
  Age: 69 Year
  Sex: Female
  Weight: 84 kg

DRUGS (1)
  1. BOTOX [Suspect]
     Active Substance: ONABOTULINUMTOXINA
     Indication: Migraine
     Dosage: FORM STRENGTH: 200 UNIT
     Route: 030
     Dates: start: 20211004

REACTIONS (12)
  - Appendicitis [Recovering/Resolving]
  - Ocular hyperaemia [Recovering/Resolving]
  - Abdominal pain [Recovered/Resolved]
  - Balance disorder [Recovering/Resolving]
  - Vision blurred [Recovering/Resolving]
  - Epistaxis [Recovered/Resolved]
  - Ocular discomfort [Recovering/Resolving]
  - Abdominal pain upper [Not Recovered/Not Resolved]
  - Large intestine perforation [Recovering/Resolving]
  - Nasal oedema [Recovered/Resolved]
  - Abdominal pain [Not Recovered/Not Resolved]
  - Eye swelling [Recovering/Resolving]

NARRATIVE: CASE EVENT DATE: 20230201
